FAERS Safety Report 18521959 (Version 2)
Quarter: 2020Q4

REPORT INFORMATION
  Report Type: Spontaneous
  Country: CN (occurrence: CN)
  Receive Date: 20201119
  Receipt Date: 20201124
  Transmission Date: 20210114
  Serious: Yes (Hospitalization, Other)
  Sender: FDA-Public Use
  Company Number: CN-PFIZER INC-2020450453

PATIENT
  Age: 52 Year
  Sex: Female

DRUGS (2)
  1. PACLITAXEL LIPOSOME [Suspect]
     Active Substance: PACLITAXEL
     Indication: NEUROENDOCRINE CARCINOMA
     Dosage: 135 MG/M2, CYCLIC (EVERY 21 D)
     Dates: start: 201805, end: 201808
  2. TS-1 [Suspect]
     Active Substance: GIMERACIL\OTERACIL\TEGAFUR
     Indication: NEUROENDOCRINE CARCINOMA
     Dosage: 60 MG, CYCLIC (TWICE DAILY FOR 4 WEEKS WITH A 2-WEEK INTERVAL)
     Dates: start: 201805, end: 201808

REACTIONS (4)
  - Thrombocytopenia [Recovering/Resolving]
  - Alanine aminotransferase increased [Recovering/Resolving]
  - Aspartate aminotransferase increased [Recovering/Resolving]
  - Diarrhoea [Recovering/Resolving]

NARRATIVE: CASE EVENT DATE: 201808
